FAERS Safety Report 7141230-8 (Version None)
Quarter: 2010Q4

REPORT INFORMATION
  Report Type: 
  Country: None (occurrence: None)
  Receive Date: 20101207
  Receipt Date: 20101202
  Transmission Date: 20110411
  Serious: Yes (Hospitalization, Other)
  Sender: FDA-Public Use
  Company Number: US-JNJFOC-20100804155

PATIENT

DRUGS (2)
  1. LEVAQUIN [Suspect]
     Indication: CYSTITIS
     Route: 048
  2. LEVAQUIN [Suspect]
     Indication: ILL-DEFINED DISORDER

REACTIONS (5)
  - DEPRESSION [None]
  - GAIT DISTURBANCE [None]
  - TENDON INJURY [None]
  - TENDON RUPTURE [None]
  - THROMBOSIS [None]
